FAERS Safety Report 25910503 (Version 1)
Quarter: 2025Q4

REPORT INFORMATION
  Report Type: Spontaneous
  Country: EU (occurrence: None)
  Receive Date: 20251012
  Receipt Date: 20251012
  Transmission Date: 20260117
  Serious: Yes (Hospitalization)
  Sender: ENDO
  Company Number: EU-ENDO USA, INC.-2025-001968

PATIENT
  Age: 30 Year
  Sex: Male
  Weight: 85 kg

DRUGS (3)
  1. TESTOSTERONE [Suspect]
     Active Substance: TESTOSTERONE
     Indication: Product use in unapproved indication
     Dosage: UNK UNKNOWN, UNKNOWN
     Route: 065
  2. METHENOLONE ACETATE [Suspect]
     Active Substance: METHENOLONE ACETATE
     Indication: Product use in unapproved indication
     Dosage: UNK UNKNOWN, UNKNOWN
  3. TRENBOLONE [Suspect]
     Active Substance: TRENBOLONE
     Indication: Product use in unapproved indication
     Dosage: UNK UNKNOWN, UNKNOWN

REACTIONS (5)
  - Petechiae [Unknown]
  - Haematuria [Recovered/Resolved]
  - Gingival bleeding [Recovered/Resolved]
  - Fibrin D dimer increased [Unknown]
  - Product use in unapproved indication [Recovered/Resolved]

NARRATIVE: CASE EVENT DATE: 20250401
